FAERS Safety Report 4558865-9 (Version None)
Quarter: 2005Q1

REPORT INFORMATION
  Report Type: 
  Country: None (occurrence: None)
  Receive Date: 20050121
  Receipt Date: 20050121
  Transmission Date: 20050727
  Serious: Yes (Death)
  Sender: FDA-Public Use
  Company Number: None

PATIENT
  Sex: Male
  Weight: 60 kg

DRUGS (11)
  1. BEVACIZUMAB [Suspect]
     Indication: NEUROENDOCRINE TUMOUR
     Dosage: 5 MG/KG   D 1 + 15   INTRAVENOU
     Route: 042
     Dates: start: 20041116, end: 20041214
  2. TEMOZOLOMIDE [Suspect]
     Indication: NEUROENDOCRINE TUMOUR
     Dosage: 150MG/M2   POQDX7   ORAL
     Route: 048
     Dates: start: 20041116, end: 20041219
  3. ATIVAN [Concomitant]
  4. COMPAZINE [Concomitant]
  5. CREON [Concomitant]
  6. DOXAZOSIN [Concomitant]
  7. DTO [Concomitant]
  8. LASIX [Concomitant]
  9. LISINOPRIL [Concomitant]
  10. OCTREOTIDE ACETATE [Concomitant]
  11. PROTONIX [Concomitant]

REACTIONS (8)
  - ASTHENIA [None]
  - BLOOD CREATINE PHOSPHOKINASE INCREASED [None]
  - DEHYDRATION [None]
  - FALL [None]
  - HYPOGLYCAEMIA [None]
  - LIVER FUNCTION TEST ABNORMAL [None]
  - POLLAKIURIA [None]
  - TROPONIN INCREASED [None]
